FAERS Safety Report 21057013 (Version 1)
Quarter: 2022Q3

REPORT INFORMATION
  Report Type: Spontaneous
  Country: US (occurrence: None)
  Receive Date: 20220707
  Receipt Date: 20220707
  Transmission Date: 20221027
  Serious: Yes (Hospitalization)
  Sender: FDA-Public Use
  Company Number: None

PATIENT
  Sex: Female

DRUGS (2)
  1. PIRFENIDONE [Suspect]
     Active Substance: PIRFENIDONE
  2. SILDENAFIL CITRATE [Suspect]
     Active Substance: SILDENAFIL CITRATE

REACTIONS (2)
  - Gastrointestinal haemorrhage [None]
  - Anaemia [None]
